FAERS Safety Report 9352652 (Version 1)
Quarter: 2013Q2

REPORT INFORMATION
  Report Type: Spontaneous
  Country: BR (occurrence: BR)
  Receive Date: 20130618
  Receipt Date: 20130618
  Transmission Date: 20140414
  Serious: Yes (Other)
  Sender: FDA-Public Use
  Company Number: BR-AMGEN-BRASP2012006038

PATIENT
  Age: 35 Year
  Sex: Male
  Weight: 92 kg

DRUGS (4)
  1. ENBREL [Suspect]
     Indication: RHEUMATOID ARTHRITIS
     Dosage: 50 MG, 1X/WEEK
     Route: 058
     Dates: start: 201112
  2. ENBREL [Suspect]
     Dosage: 50 MG, QWK
     Route: 058
     Dates: start: 201110
  3. METHOTREXATE [Concomitant]
     Indication: RHEUMATOID ARTHRITIS
     Dosage: UNK
  4. FOLIC ACID [Concomitant]
     Indication: LIVER DISORDER
     Dosage: UNK
     Dates: start: 2005

REACTIONS (3)
  - Spinal cord disorder [Unknown]
  - Injection site pain [Unknown]
  - Injection site discolouration [Unknown]
